FAERS Safety Report 10128429 (Version 1)
Quarter: 2014Q2

REPORT INFORMATION
  Report Type: Other
  Country: PL (occurrence: PL)
  Receive Date: 20140428
  Receipt Date: 20140428
  Transmission Date: 20141212
  Serious: Yes (Other)
  Sender: FDA-Public Use
  Company Number: PL-BRISTOL-MYERS SQUIBB COMPANY-20675880

PATIENT
  Sex: Male

DRUGS (3)
  1. DOXORUBICIN [Suspect]
     Indication: COLORECTAL ADENOCARCINOMA
  2. CHINESE HERBS [Suspect]
  3. IFOSFAMIDE [Suspect]
     Indication: COLORECTAL ADENOCARCINOMA

REACTIONS (2)
  - Tubulointerstitial nephritis [Unknown]
  - Renal transplant [Unknown]
